FAERS Safety Report 16051112 (Version 2)
Quarter: 2019Q2

REPORT INFORMATION
  Report Type: Spontaneous
  Country: GB (occurrence: GB)
  Receive Date: 20190308
  Receipt Date: 20190419
  Transmission Date: 20190711
  Serious: Yes (Other)
  Sender: FDA-Public Use
  Company Number: PHHY2019GB050356

PATIENT
  Sex: Male

DRUGS (1)
  1. IMATINIB. [Suspect]
     Active Substance: IMATINIB MESYLATE
     Indication: CHRONIC MYELOID LEUKAEMIA
     Dosage: UNK
     Route: 065

REACTIONS (6)
  - Gastrointestinal erosion [Unknown]
  - Gastrointestinal haemorrhage [Unknown]
  - Blood count abnormal [Unknown]
  - Transformation to acute myeloid leukaemia [Unknown]
  - Drug intolerance [Unknown]
  - Iron deficiency [Unknown]
